FAERS Safety Report 8178851-X (Version None)
Quarter: 2012Q1

REPORT INFORMATION
  Report Type: 
  Country: None (occurrence: None)
  Receive Date: 20120302
  Receipt Date: 20120224
  Transmission Date: 20120608
  Serious: Yes (Death, Life-Threatening, Hospitalization, Other)
  Sender: FDA-Public Use
  Company Number: US-BRISTOL-MYERS SQUIBB COMPANY-16418014

PATIENT
  Age: 65 Year
  Sex: Female
  Weight: 66 kg

DRUGS (1)
  1. ORENCIA [Suspect]
     Dates: start: 20120118

REACTIONS (6)
  - RIB FRACTURE [None]
  - NAUSEA [None]
  - MYOCARDIAL INFARCTION [None]
  - ASTHENIA [None]
  - PNEUMOTHORAX [None]
  - ROAD TRAFFIC ACCIDENT [None]
